FAERS Safety Report 11837264 (Version 4)
Quarter: 2016Q2

REPORT INFORMATION
  Report Type: Spontaneous
  Country: US (occurrence: US)
  Receive Date: 20151215
  Receipt Date: 20160629
  Transmission Date: 20160815
  Serious: No
  Sender: FDA-Public Use
  Company Number: US-PFIZER INC-2015424698

PATIENT
  Age: 69 Year
  Sex: Female

DRUGS (9)
  1. LYRICA [Suspect]
     Active Substance: PREGABALIN
     Indication: FIBROMYALGIA
     Dosage: 150 MG, 3X/DAY
     Route: 048
     Dates: start: 201510
  2. CITALOPRAM [Concomitant]
     Active Substance: CITALOPRAM HYDROBROMIDE
     Dosage: 40 MG, 1X/DAY
  3. DEPAKOTE [Concomitant]
     Active Substance: DIVALPROEX SODIUM
     Indication: BIPOLAR DISORDER
     Dosage: 250 MG, 2X/DAY
     Dates: start: 201509
  4. LYRICA [Suspect]
     Active Substance: PREGABALIN
     Indication: NEUROPATHY PERIPHERAL
  5. TOPAMAX [Concomitant]
     Active Substance: TOPIRAMATE
     Indication: MIGRAINE
     Dosage: 100 MG, 1X/DAY (Q H.S.)
  6. XANAX [Concomitant]
     Active Substance: ALPRAZOLAM
     Dosage: 0.5 MG, 2X/DAY
  7. HYDROCODONE [Concomitant]
     Active Substance: HYDROCODONE
     Indication: OSTEOARTHRITIS
     Dosage: UNK, AS NEEDED (10/325 MGP.O. QID PRN)
     Route: 048
     Dates: start: 201502
  8. HYDROCODONE [Concomitant]
     Active Substance: HYDROCODONE
     Indication: BACK PAIN
  9. SINVASTIN [Concomitant]
     Active Substance: SIMVASTATIN
     Dosage: 20 MG, 1X/DAY

REACTIONS (1)
  - Cough [Unknown]
